FAERS Safety Report 15448088 (Version 2)
Quarter: 2018Q4

REPORT INFORMATION
  Report Type: Report from Study
  Country: US (occurrence: US)
  Receive Date: 20180928
  Receipt Date: 20181031
  Transmission Date: 20190204
  Serious: No
  Sender: FDA-Public Use
  Company Number: PHEH2018US040215

PATIENT
  Sex: Female

DRUGS (1)
  1. COSENTYX [Suspect]
     Active Substance: SECUKINUMAB
     Indication: PSORIASIS
     Dosage: 300 MG, QMO
     Route: 058

REACTIONS (7)
  - Fall [Unknown]
  - Drug ineffective [Unknown]
  - Onychalgia [Unknown]
  - Psoriasis [Unknown]
  - Spinal pain [Unknown]
  - Arthropod bite [Unknown]
  - Nail discolouration [Unknown]
